FAERS Safety Report 4355323-1 (Version None)
Quarter: 2004Q2

REPORT INFORMATION
  Report Type: 
  Country: None (occurrence: None)
  Receive Date: 20040504
  Receipt Date: 20040421
  Transmission Date: 20050107
  Serious: Yes (Other)
  Sender: FDA-Public Use
  Company Number: GB-JNJFOC-20040200170

PATIENT
  Age: 52 Year
  Sex: Male

DRUGS (3)
  1. RISPERDAL [Suspect]
     Indication: SCHIZOPHRENIA
     Dosage: 4MG, 1 IN 1 DAY, ORAL
     Route: 048
     Dates: start: 20031201, end: 20040120
  2. CLOZAPINE [Suspect]
     Indication: SCHIZOPHRENIA
     Dosage: 62.5 MG, 1 IN 1 DAY,
     Dates: start: 20040116
  3. LORAZEPAM [Concomitant]

REACTIONS (5)
  - AGITATION [None]
  - CONFUSIONAL STATE [None]
  - DELIRIUM [None]
  - DRUG INTERACTION [None]
  - HALLUCINATION [None]
